FAERS Safety Report 5672564-1 (Version None)
Quarter: 2008Q1

REPORT INFORMATION
  Report Type: 
  Country: None (occurrence: None)
  Receive Date: 20080319
  Receipt Date: 20080312
  Transmission Date: 20080703
  Serious: Yes (Other)
  Sender: FDA-Public Use
  Company Number: PHHY2008JP03113

PATIENT
  Age: 66 Year
  Sex: Female

DRUGS (4)
  1. ASPIRIN [Concomitant]
     Dosage: UNK, UNK
     Route: 048
  2. CRESTOR [Concomitant]
     Dosage: 2.5 MG, UNK
     Route: 048
  3. DIOVAN [Suspect]
     Dosage: 80 MG, QD
     Route: 048
     Dates: start: 20010101, end: 20010101
  4. DIOVAN [Suspect]
     Dosage: 80 MG, BID
     Route: 048
     Dates: start: 20010101

REACTIONS (2)
  - BLOOD CREATININE INCREASED [None]
  - CEREBRAL INFARCTION [None]
